FAERS Safety Report 6907964-2 (Version None)
Quarter: 2010Q3

REPORT INFORMATION
  Report Type: 
  Country: None (occurrence: None)
  Receive Date: 20100727
  Receipt Date: 20100715
  Transmission Date: 20110219
  Serious: Yes (Hospitalization)
  Sender: FDA-Public Use
  Company Number: ES-SANOFI-AVENTIS-2010SA041240

PATIENT
  Age: 63 Year
  Sex: Male
  Weight: 74 kg

DRUGS (6)
  1. ENOXAPARIN SODIUM [Suspect]
     Indication: THROMBOSIS PROPHYLAXIS
     Route: 058
     Dates: start: 20100301, end: 20100602
  2. PHENYTOIN [Suspect]
     Route: 048
     Dates: start: 20100301, end: 20100602
  3. FORTECORTIN [Suspect]
     Dates: start: 20100301, end: 20100602
  4. LOITIN [Suspect]
     Route: 048
     Dates: start: 20100301, end: 20100602
  5. PANTOPRAZOLE [Suspect]
     Indication: PROPHYLAXIS AGAINST GASTROINTESTINAL ULCER
     Route: 048
     Dates: start: 20100301, end: 20100602
  6. SIMVASTATIN [Suspect]
     Indication: DYSLIPIDAEMIA
     Route: 048
     Dates: start: 20100301, end: 20100602

REACTIONS (1)
  - TOXIC EPIDERMAL NECROLYSIS [None]
